FAERS Safety Report 7576094-1 (Version None)
Quarter: 2011Q2

REPORT INFORMATION
  Report Type: 
  Country: None (occurrence: None)
  Receive Date: 20110623
  Receipt Date: 20110623
  Transmission Date: 20111010
  Serious: Yes (Disabling)
  Sender: FDA-Public Use
  Company Number: None

PATIENT
  Age: 82 Year
  Sex: Male
  Weight: 70.3075 kg

DRUGS (2)
  1. ZOMETA [Suspect]
     Dosage: 8-26-09 12-30-09
     Dates: start: 20091230
  2. ZOMETA [Suspect]
     Dosage: 8-26-09 12-30-09
     Dates: start: 20090826

REACTIONS (1)
  - OSTEOARTHRITIS [None]
